FAERS Safety Report 6620461-7 (Version None)
Quarter: 2010Q1

REPORT INFORMATION
  Report Type: 
  Country: None (occurrence: None)
  Receive Date: 20100309
  Receipt Date: 20100301
  Transmission Date: 20100710
  Serious: Yes (Other)
  Sender: FDA-Public Use
  Company Number: GXKR2010US02458

PATIENT
  Age: 67 Year
  Sex: Male

DRUGS (5)
  1. MYCOPHENOLATE MOFETIL (NGX) [Suspect]
     Dosage: 500 MG, BID
  2. PREDNISONE TAB [Suspect]
     Dosage: 7.5 MG, DAILY
  3. PREDNISONE TAB [Suspect]
     Dosage: 5 MG, DAILY
  4. TACROLIMUS [Suspect]
     Dosage: 2 MG, BID
  5. TACROLIMUS [Suspect]
     Dosage: DOSE REDUCED TO 50%

REACTIONS (7)
  - ABDOMINAL DISCOMFORT [None]
  - DECREASED APPETITE [None]
  - EPSTEIN-BARR VIRUS ASSOCIATED LYMPHOPROLIFERATIVE DISORDER [None]
  - NIGHT SWEATS [None]
  - PROTEINURIA [None]
  - RETROPERITONEAL LYMPHADENOPATHY [None]
  - WEIGHT DECREASED [None]
